FAERS Safety Report 15541714 (Version 1)
Quarter: 2018Q4

REPORT INFORMATION
  Report Type: Spontaneous
  Country: US (occurrence: US)
  Receive Date: 20181023
  Receipt Date: 20181023
  Transmission Date: 20190205
  Serious: No
  Sender: FDA-Public Use
  Company Number: US-PURDUE-USA-2018-0144022

PATIENT
  Sex: Female
  Weight: 71.2 kg

DRUGS (3)
  1. DIAZEPAM. [Concomitant]
     Active Substance: DIAZEPAM
     Indication: STRESS
  2. DIAZEPAM. [Concomitant]
     Active Substance: DIAZEPAM
     Indication: GASTRIC DISORDER
     Dosage: 10 MG, UNK
     Route: 065
  3. OXYCODONE HYDROCHLORIDE (SIMILAR TO NDA 22-272) [Suspect]
     Active Substance: OXYCODONE HYDROCHLORIDE
     Indication: PAIN
     Dosage: 5 MG, UNK
     Route: 065

REACTIONS (1)
  - Drug ineffective [Unknown]
